FAERS Safety Report 8932693 (Version 1)
Quarter: 2012Q4

REPORT INFORMATION
  Report Type: Spontaneous
  Country: US (occurrence: None)
  Receive Date: 20121126
  Receipt Date: 20121126
  Transmission Date: 20130627
  Serious: No
  Sender: FDA-Public Use
  Company Number: None

PATIENT
  Age: 59 Year
  Sex: Female

DRUGS (1)
  1. INTRON A [Suspect]
     Indication: MALIGNANT MELANOMA
     Route: 058
     Dates: start: 20120901

REACTIONS (7)
  - Vertigo [None]
  - Nausea [None]
  - Fatigue [None]
  - Cough [None]
  - Secretion discharge [None]
  - Amnesia [None]
  - Alopecia [None]
